FAERS Safety Report 5297095-2 (Version None)
Quarter: 2007Q1

REPORT INFORMATION
  Report Type: 
  Country: None (occurrence: None)
  Receive Date: 20070201
  Receipt Date: 20061010
  Transmission Date: 20070707
  Serious: No
  Sender: FDA-Public Use
  Company Number: 2006PV022819

PATIENT
  Age: 59 Year
  Sex: Female
  Weight: 113.3993 kg

DRUGS (3)
  1. BYETTA [Suspect]
     Indication: DIABETES MELLITUS NON-INSULIN-DEPENDENT
     Dosage: SEE IMAGE
     Route: 058
     Dates: start: 20050701, end: 20050701
  2. BYETTA [Suspect]
     Indication: DIABETES MELLITUS NON-INSULIN-DEPENDENT
     Dosage: SEE IMAGE
     Route: 058
     Dates: start: 20050701
  3. GLUCOPHAGE [Concomitant]

REACTIONS (7)
  - ANGINA PECTORIS [None]
  - DECREASED APPETITE [None]
  - NAUSEA [None]
  - PERTUSSIS [None]
  - PNEUMONIA [None]
  - RESPIRATORY DISORDER [None]
  - WEIGHT DECREASED [None]
